FAERS Safety Report 20938646 (Version 17)
Quarter: 2025Q4

REPORT INFORMATION
  Report Type: Spontaneous
  Country: US (occurrence: US)
  Receive Date: 20220609
  Receipt Date: 20251001
  Transmission Date: 20260117
  Serious: Yes (Hospitalization, Other)
  Sender: PFIZER
  Company Number: US-PFIZER INC-202200802631

PATIENT
  Age: 77 Year
  Sex: Female
  Weight: 81.179 kg

DRUGS (22)
  1. IBRANCE [Suspect]
     Active Substance: PALBOCICLIB
     Indication: Breast cancer metastatic
     Dosage: 100 MG, (ONCE A MONTH, 21 PILLS)
     Dates: end: 202311
  2. IBRANCE [Suspect]
     Active Substance: PALBOCICLIB
     Dosage: 125 MG
  3. IBRANCE [Suspect]
     Active Substance: PALBOCICLIB
     Dosage: ONE TABLET FOR 21 DAYS THEN OFF FOR SEVEN DAYS/100 MG TABLET DAILY 21 DAYS ON, 7 DAYS OFF
     Route: 048
  4. IBRANCE [Suspect]
     Active Substance: PALBOCICLIB
     Dosage: 150 MG
  5. IBRANCE [Suspect]
     Active Substance: PALBOCICLIB
     Dosage: 100 MG
  6. TYLENOL [Concomitant]
     Active Substance: ACETAMINOPHEN
     Indication: Arthritis
     Dosage: UNK
  7. BENZONATATE [Concomitant]
     Active Substance: BENZONATATE
     Indication: Nasopharyngitis
     Dosage: UNK
  8. BENZONATATE [Concomitant]
     Active Substance: BENZONATATE
     Indication: Cough
  9. CLOBETASOL [Concomitant]
     Active Substance: CLOBETASOL
     Dosage: 0.5 CREAM
  10. CLOBETASOL PROPIONATE [Concomitant]
     Active Substance: CLOBETASOL PROPIONATE
     Dosage: UNK
  11. LORAZEPAM [Concomitant]
     Active Substance: LORAZEPAM
     Dosage: 0.5 MG
  12. SYNTHROID [Concomitant]
     Active Substance: LEVOTHYROXINE SODIUM
     Dosage: 150 MG
  13. LOSARTAN [Concomitant]
     Active Substance: LOSARTAN
     Dosage: 25 MG
  14. MECLIZINE [Concomitant]
     Active Substance: MECLIZINE HYDROCHLORIDE
     Indication: Dizziness
     Dosage: 12.5 MG
  15. METOPROLOL [Concomitant]
     Active Substance: METOPROLOL
     Dosage: 0.5 MG
  16. MUPIROCIN [Concomitant]
     Active Substance: MUPIROCIN
     Dosage: UNK
  17. OMEPRAZOLE [Concomitant]
     Active Substance: OMEPRAZOLE
     Dosage: 40 MG
  18. PROAIR HFA [Concomitant]
     Active Substance: ALBUTEROL SULFATE
     Indication: Dyspnoea
     Dosage: 90 UG
  19. PROMETHAZINE [Concomitant]
     Active Substance: PROMETHAZINE HYDROCHLORIDE
     Dosage: UNK
  20. ROSUVASTATIN [Concomitant]
     Active Substance: ROSUVASTATIN
     Dosage: 5 MG
  21. ZAFIRLUKAST [Concomitant]
     Active Substance: ZAFIRLUKAST
     Indication: Inhalation therapy
     Dosage: 40 MG, 2X/DAY
  22. ASPIRIN [Concomitant]
     Active Substance: ASPIRIN
     Dosage: UNK

REACTIONS (25)
  - Limb injury [Recovering/Resolving]
  - Peripheral embolism [Recovering/Resolving]
  - Blood iron decreased [Unknown]
  - Urinary tract infection [Recovered/Resolved]
  - Breast cancer metastatic [Unknown]
  - Malignant neoplasm progression [Unknown]
  - Metastases to bone [Unknown]
  - Metastases to lung [Unknown]
  - Cardiac operation [Unknown]
  - Bone pain [Unknown]
  - Musculoskeletal discomfort [Unknown]
  - Pain in extremity [Unknown]
  - Synovial cyst [Unknown]
  - Full blood count decreased [Unknown]
  - Auditory disorder [Unknown]
  - Aneurysm [Recovering/Resolving]
  - Somnolence [Unknown]
  - Neck mass [Unknown]
  - Dyspnoea [Unknown]
  - Weight increased [Unknown]
  - Chest discomfort [Unknown]
  - Limb discomfort [Unknown]
  - Cardiac disorder [Unknown]
  - Blood test abnormal [Recovering/Resolving]
  - Dizziness [Unknown]

NARRATIVE: CASE EVENT DATE: 20230101
